FAERS Safety Report 6172442-8 (Version None)
Quarter: 2009Q2

REPORT INFORMATION
  Report Type: 
  Country: None (occurrence: None)
  Receive Date: 20090429
  Receipt Date: 20090424
  Transmission Date: 20091009
  Serious: Yes (Death, Hospitalization)
  Sender: FDA-Public Use
  Company Number: US-SANOFI-SYNTHELABO-A03200901784

PATIENT
  Age: 6 Year
  Sex: Male

DRUGS (5)
  1. CARBOPLATIN [Suspect]
     Indication: HEPATOBLASTOMA
     Dosage: UNK
     Route: 065
  2. CISPLATIN [Suspect]
     Indication: HEPATOBLASTOMA
     Dosage: UNK
     Route: 065
  3. GEMCITABINE HCL [Suspect]
     Indication: HEPATOBLASTOMA
     Route: 065
  4. BEVACIZUMAB [Suspect]
     Indication: HEPATOBLASTOMA
     Route: 065
  5. ELOXATIN [Suspect]
     Indication: HEPATOBLASTOMA
     Route: 042

REACTIONS (2)
  - DISEASE PROGRESSION [None]
  - REVERSIBLE POSTERIOR LEUKOENCEPHALOPATHY SYNDROME [None]
